FAERS Safety Report 14179371 (Version 1)
Quarter: 2017Q4

REPORT INFORMATION
  Report Type: Spontaneous
  Country: GB (occurrence: GB)
  Receive Date: 20171110
  Receipt Date: 20171110
  Transmission Date: 20180321
  Serious: Yes (Other)
  Sender: FDA-Public Use
  Company Number: GB-TEVA-823117ACC

PATIENT
  Age: 70 Year
  Sex: Female
  Weight: 58 kg

DRUGS (13)
  1. COLECALCIFEROL [Concomitant]
     Active Substance: CHOLECALCIFEROL
     Dates: start: 20170915
  2. RAMIPRIL. [Concomitant]
     Active Substance: RAMIPRIL
     Dosage: 1 DOSAGE FORMS DAILY;
     Dates: start: 20170907
  3. THIAMINE. [Concomitant]
     Active Substance: THIAMINE
     Dosage: 3 DOSAGE FORMS DAILY;
     Dates: start: 20170525
  4. ANORO ELLIPTA [Concomitant]
     Active Substance: UMECLIDINIUM BROMIDE\VILANTEROL TRIFENATATE
     Dosage: 1 DOSAGE FORMS DAILY;
     Route: 055
     Dates: start: 20170525
  5. ATENOLOL. [Concomitant]
     Active Substance: ATENOLOL
     Dosage: 2 DOSAGE FORMS DAILY;
     Dates: start: 20170525
  6. PREDNISOLONE. [Concomitant]
     Active Substance: PREDNISOLONE
     Dosage: 8 DOSAGE FORMS DAILY;
     Dates: start: 20170804, end: 20170811
  7. AMOXICILLIN. [Suspect]
     Active Substance: AMOXICILLIN
     Dates: start: 20171025
  8. CODEINE PHOSPHATE [Concomitant]
     Active Substance: CODEINE PHOSPHATE
     Dosage: 4 DOSAGE FORMS DAILY;
     Dates: start: 20170907, end: 20171005
  9. LANSOPRAZOLE. [Concomitant]
     Active Substance: LANSOPRAZOLE
     Dosage: 2 DOSAGE FORMS DAILY;
     Dates: start: 20170525
  10. AMOXIL [Suspect]
     Active Substance: AMOXICILLIN
     Dosage: 3 DOSAGE FORMS DAILY;
     Dates: start: 20170804, end: 20170811
  11. TRAMADOL. [Concomitant]
     Active Substance: TRAMADOL
     Dosage: TAKE 1-2 AS NECESSARY FOUR TIMES DAILY MAX
     Dates: start: 20171016
  12. CALCI-D [Concomitant]
     Dosage: 1 DOSAGE FORMS DAILY;
     Dates: start: 20170525
  13. COCODAMOL [Concomitant]
     Active Substance: ACETAMINOPHEN\CODEINE PHOSPHATE
     Dosage: TAKE 1 -2 FOUR TIMES DAILY
     Dates: start: 20171025

REACTIONS (2)
  - Hyperhidrosis [Recovered/Resolved]
  - Dermatitis allergic [Recovered/Resolved]

NARRATIVE: CASE EVENT DATE: 20171025
